FAERS Safety Report 7909218-4 (Version None)
Quarter: 2011Q4

REPORT INFORMATION
  Report Type: 
  Country: None (occurrence: None)
  Receive Date: 20111111
  Receipt Date: 20111108
  Transmission Date: 20120403
  Serious: Yes (Hospitalization)
  Sender: FDA-Public Use
  Company Number: CO-BIOMARINP-002071

PATIENT
  Age: 8 Year
  Sex: Female

DRUGS (5)
  1. FUROSEMIDE [Concomitant]
  2. SPIRONOLACTONE [Concomitant]
  3. ENALAPRIL MALEATE [Concomitant]
  4. NAGLAZYME [Suspect]
     Indication: MUCOPOLYSACCHARIDOSIS VI
     Dates: start: 20110527
  5. SILDENAFIL [Concomitant]

REACTIONS (3)
  - CARDIAC FAILURE [None]
  - PULMONARY HYPERTENSION [None]
  - ACUTE RESPIRATORY DISTRESS SYNDROME [None]
